FAERS Safety Report 4382672-3 (Version None)
Quarter: 2004Q2

REPORT INFORMATION
  Report Type: 
  Country: None (occurrence: None)
  Receive Date: 20040617
  Receipt Date: 20040611
  Transmission Date: 20050107
  Serious: Yes (Hospitalization)
  Sender: FDA-Public Use
  Company Number: 200410399BNE

PATIENT
  Sex: Female

DRUGS (3)
  1. ASPIRIN [Suspect]
     Indication: MYOCARDIAL ISCHAEMIA
     Dosage: 75 MG, TOTAL DAILY, ORAL
     Route: 048
     Dates: end: 20031110
  2. ROFECOXIB [Suspect]
     Indication: RHEUMATOID ARTHRITIS
     Dosage: 50 MG, TOTAL DAILY, ORAL
     Route: 048
     Dates: end: 20031110
  3. DILTIAZEM [Concomitant]

REACTIONS (3)
  - GASTRITIS EROSIVE [None]
  - HAEMATEMESIS [None]
  - MYOCARDIAL INFARCTION [None]
